FAERS Safety Report 23989271 (Version 1)
Quarter: 2024Q2

REPORT INFORMATION
  Report Type: Spontaneous
  Country: US (occurrence: US)
  Receive Date: 20240619
  Receipt Date: 20240619
  Transmission Date: 20240716
  Serious: Yes (Other)
  Sender: FDA-Public Use
  Company Number: US-ROCHE-3579691

PATIENT
  Sex: Female

DRUGS (1)
  1. CAPECITABINE [Suspect]
     Active Substance: CAPECITABINE
     Indication: Triple negative breast cancer
     Dosage: BID?DAILY DOSE: 5000 MILLIGRAM
     Route: 048
     Dates: start: 20240410, end: 20240422

REACTIONS (1)
  - Cytotoxic lesions of corpus callosum [Not Recovered/Not Resolved]

NARRATIVE: CASE EVENT DATE: 20240422
